FAERS Safety Report 7361262-4 (Version None)
Quarter: 2011Q1

REPORT INFORMATION
  Report Type: 
  Country: None (occurrence: None)
  Receive Date: 20110318
  Receipt Date: 20110315
  Transmission Date: 20110831
  Serious: Yes (Death)
  Sender: FDA-Public Use
  Company Number: PHHY2011US02845

PATIENT
  Sex: Male

DRUGS (1)
  1. RECLAST [Suspect]
     Route: 042
     Dates: start: 20100101

REACTIONS (1)
  - HIV INFECTION [None]
